FAERS Safety Report 19094548 (Version 1)
Quarter: 2021Q2

REPORT INFORMATION
  Report Type: Spontaneous
  Country: FR (occurrence: FR)
  Receive Date: 20210405
  Receipt Date: 20210405
  Transmission Date: 20210717
  Serious: No
  Sender: FDA-Public Use
  Company Number: FR-JAZZ-2021-FR-000754

PATIENT

DRUGS (3)
  1. EFFEXOR [Concomitant]
     Active Substance: VENLAFAXINE HYDROCHLORIDE
     Dosage: UNK
  2. SUNOSI [Suspect]
     Active Substance: SOLRIAMFETOL
     Dosage: 37.5 MILLIGRAM, UNKNOWN FREQUENCY
     Route: 048
  3. SUNOSI [Suspect]
     Active Substance: SOLRIAMFETOL
     Indication: NARCOLEPSY
     Dosage: 75 MILLIGRAM, UNKNOWN FREQUENCY, TREATMENT FOR 15 DAYS
     Route: 048
     Dates: start: 202011

REACTIONS (3)
  - Chest pain [Unknown]
  - Anxiety [Recovered/Resolved]
  - Throat tightness [Recovered/Resolved]

NARRATIVE: CASE EVENT DATE: 2020
